FAERS Safety Report 17758393 (Version 1)
Quarter: 2020Q2

REPORT INFORMATION
  Report Type: Report from Study
  Country: BR (occurrence: BR)
  Receive Date: 20200507
  Receipt Date: 20200507
  Transmission Date: 20200714
  Serious: Yes (Other)
  Sender: FDA-Public Use
  Company Number: PHHY2017BR175973

PATIENT
  Age: 14 Year
  Sex: Male

DRUGS (2)
  1. OMNITROPE [Suspect]
     Active Substance: SOMATROPIN
     Dosage: 0.4 UNK (7 TIMES)
     Route: 065
     Dates: end: 201912
  2. OMNITROPE [Suspect]
     Active Substance: SOMATROPIN
     Indication: GROWTH DISORDER
     Dosage: 0.4 MG, (10 MG/1.5 ML) SEVEN TIMES A WEEK
     Route: 065
     Dates: start: 201707

REACTIONS (7)
  - Growth retardation [Recovered/Resolved]
  - Incorrect dose administered by device [Unknown]
  - Sleep disorder [Recovered/Resolved]
  - Irritability [Recovered/Resolved]
  - Nervousness [Recovered/Resolved]
  - Anxiety [Recovered/Resolved]
  - Device issue [Unknown]

NARRATIVE: CASE EVENT DATE: 201912
